FAERS Safety Report 12954870 (Version 37)
Quarter: 2022Q1

REPORT INFORMATION
  Report Type: Report from Study
  Country: CA (occurrence: CA)
  Receive Date: 20161118
  Receipt Date: 20220221
  Transmission Date: 20220424
  Serious: Yes (Hospitalization, Other)
  Sender: FDA-Public Use
  Company Number: PHHY2016CA142165

PATIENT
  Age: 56 Year
  Sex: Male

DRUGS (17)
  1. SANDOSTATIN LAR DEPOT [Suspect]
     Active Substance: OCTREOTIDE ACETATE
     Indication: Neuroendocrine tumour
     Dosage: 30 MG, QMO (EVERY 4 WEEKS)
     Route: 030
     Dates: start: 20160915, end: 201712
  2. SANDOSTATIN LAR DEPOT [Suspect]
     Active Substance: OCTREOTIDE ACETATE
     Indication: Carcinoid tumour
     Dosage: 30 MG, QMO (EVERY 4 WEEKS)
     Route: 030
     Dates: start: 20180904
  3. SANDOSTATIN LAR DEPOT [Suspect]
     Active Substance: OCTREOTIDE ACETATE
     Dosage: 1 DOSAGE FORM, Q4W
     Route: 030
     Dates: start: 20160915
  4. SANDOSTATIN [Suspect]
     Active Substance: OCTREOTIDE ACETATE
     Indication: Neuroendocrine tumour
     Dosage: UNK
     Route: 058
  5. SANDOSTATIN [Suspect]
     Active Substance: OCTREOTIDE ACETATE
     Indication: Carcinoid tumour
  6. SANDOSTATIN [Suspect]
     Active Substance: OCTREOTIDE ACETATE
  7. RABEPRAZOLE [Concomitant]
     Active Substance: RABEPRAZOLE
     Indication: Dyspepsia
     Dosage: 20 MG, QD
     Route: 048
  8. OMEGA [Concomitant]
     Indication: Product used for unknown indication
     Dosage: 100 MCG/ML, BID
     Route: 065
     Dates: start: 20160906
  9. OCTREOTIDE ACETATE [Concomitant]
     Active Substance: OCTREOTIDE ACETATE
     Indication: Product used for unknown indication
     Dosage: 100 UG, BID
     Route: 058
     Dates: start: 20160906
  10. VENLAFAXINE [Concomitant]
     Active Substance: VENLAFAXINE HYDROCHLORIDE
     Indication: Product used for unknown indication
     Dosage: 75 MG, QD
     Route: 065
  11. MORPHINE SULFATE [Concomitant]
     Active Substance: MORPHINE SULFATE
     Indication: Product used for unknown indication
     Dosage: UNK
     Route: 048
  12. MORPHINE SULFATE [Concomitant]
     Active Substance: MORPHINE SULFATE
     Indication: Product used for unknown indication
     Dosage: UNK
     Route: 048
  13. CHLORTHALIDONE [Concomitant]
     Active Substance: CHLORTHALIDONE
     Indication: Product used for unknown indication
     Dosage: UNK
     Route: 048
  14. LISINOPRIL [Concomitant]
     Active Substance: LISINOPRIL
     Indication: Product used for unknown indication
     Dosage: UNK
     Route: 048
  15. DULOXETINE [Concomitant]
     Active Substance: DULOXETINE
     Indication: Product used for unknown indication
     Dosage: UNK
     Route: 048
  16. AMLODIPINE [Concomitant]
     Active Substance: AMLODIPINE BESYLATE
     Indication: Product used for unknown indication
     Dosage: UNK
     Route: 048
  17. AFINITOR [Concomitant]
     Active Substance: EVEROLIMUS
     Indication: Neuroendocrine tumour
     Dosage: 10 MG, QD
     Route: 048
     Dates: start: 20200818

REACTIONS (31)
  - Blood pressure inadequately controlled [Unknown]
  - Pancreatitis [Unknown]
  - Abdominal pain [Unknown]
  - Blood pressure increased [Unknown]
  - Pancreatic atrophy [Unknown]
  - Aortic arteriosclerosis [Unknown]
  - Metastases to abdominal wall [Unknown]
  - Neuroendocrine carcinoma [Unknown]
  - Malignant neoplasm progression [Unknown]
  - Night sweats [Unknown]
  - Discomfort [Unknown]
  - Pollakiuria [Unknown]
  - Ocular icterus [Unknown]
  - Yellow skin [Unknown]
  - Chromaturia [Unknown]
  - Cold sweat [Unknown]
  - Pain [Unknown]
  - Lymphadenopathy [Unknown]
  - Biliary tract disorder [Unknown]
  - Renal disorder [Unknown]
  - Bladder hypertrophy [Unknown]
  - Spinal osteoarthritis [Unknown]
  - Spondylolisthesis [Unknown]
  - Spondylolysis [Unknown]
  - Diarrhoea [Unknown]
  - Headache [Unknown]
  - Nausea [Unknown]
  - Abdominal pain upper [Unknown]
  - Abdominal distension [Unknown]
  - Flatulence [Unknown]
  - Drug ineffective [Unknown]

NARRATIVE: CASE EVENT DATE: 20161012
